FAERS Safety Report 4946148-4 (Version None)
Quarter: 2006Q1

REPORT INFORMATION
  Report Type: 
  Country: None (occurrence: None)
  Receive Date: 20060118
  Receipt Date: 20050308
  Transmission Date: 20060701
  Serious: Yes (Other)
  Sender: FDA-Public Use
  Company Number: BDI-006995

PATIENT
  Age: 34 Year
  Sex: Female

DRUGS (3)
  1. PROHANCE [Suspect]
     Indication: HEADACHE
     Dosage: 15 ML ONCE IV
     Route: 042
     Dates: start: 20050225, end: 20050225
  2. PROHANCE [Suspect]
     Indication: NECK PAIN
     Dosage: 15 ML ONCE IV
     Route: 042
     Dates: start: 20050225, end: 20050225
  3. PROHANCE [Suspect]
     Indication: NUCLEAR MAGNETIC RESONANCE IMAGING BRAIN
     Dosage: 15 ML ONCE IV
     Route: 042
     Dates: start: 20050225, end: 20050225

REACTIONS (1)
  - ANAPHYLACTIC SHOCK [None]
